FAERS Safety Report 6228074-6 (Version None)
Quarter: 2009Q2

REPORT INFORMATION
  Report Type: 
  Country: None (occurrence: None)
  Receive Date: 20090612
  Receipt Date: 20090604
  Transmission Date: 20091009
  Serious: Yes (Hospitalization, Other)
  Sender: FDA-Public Use
  Company Number: US-BAYER-200911698BCC

PATIENT
  Age: 51 Year
  Sex: Female

DRUGS (8)
  1. ASPIRIN [Suspect]
     Indication: DRUG USE FOR UNKNOWN INDICATION
  2. REBIF [Suspect]
     Indication: SECONDARY PROGRESSIVE MULTIPLE SCLEROSIS
     Route: 058
     Dates: start: 20090216, end: 20090317
  3. REBIF [Suspect]
     Route: 058
     Dates: start: 20090421
  4. PLAVIX [Suspect]
     Indication: DRUG USE FOR UNKNOWN INDICATION
  5. CORTICOSTEROIDS [Concomitant]
     Indication: VISUAL IMPAIRMENT
  6. VITAMINS [Concomitant]
     Indication: DRUG USE FOR UNKNOWN INDICATION
  7. MECLIZINE [Concomitant]
     Indication: DIZZINESS
  8. LEVAQUIN [Concomitant]
     Indication: URINARY TRACT INFECTION
     Dates: start: 20090401, end: 20090101

REACTIONS (5)
  - CEREBROVASCULAR ACCIDENT [None]
  - GASTROINTESTINAL HAEMORRHAGE [None]
  - HAEMATOCHEZIA [None]
  - HAEMORRHOIDAL HAEMORRHAGE [None]
  - URINARY TRACT INFECTION [None]
